FAERS Safety Report 20573867 (Version 1)
Quarter: 2022Q1

REPORT INFORMATION
  Report Type: Spontaneous
  Country: FR (occurrence: FR)
  Receive Date: 20220309
  Receipt Date: 20220309
  Transmission Date: 20220423
  Serious: Yes (Congenital Anomaly, Other)
  Sender: FDA-Public Use
  Company Number: FR-ABBVIE-22K-056-4306137-00

PATIENT
  Sex: Male
  Weight: 2.75 kg

DRUGS (2)
  1. VALPROATE SODIUM [Suspect]
     Active Substance: VALPROATE SODIUM
     Indication: Maternal exposure timing unspecified
     Route: 064
  2. FOLIC ACID [Concomitant]
     Active Substance: FOLIC ACID
     Indication: Maternal exposure timing unspecified
     Route: 064

REACTIONS (48)
  - Foetal growth restriction [Unknown]
  - Congenital cystic kidney disease [Unknown]
  - Inguinal hernia [Unknown]
  - Acquired plagiocephaly [Unknown]
  - Hypotonia [Unknown]
  - Knee deformity [Unknown]
  - Scoliosis [Unknown]
  - Foot deformity [Unknown]
  - Arthropathy [Unknown]
  - Psychomotor retardation [Unknown]
  - Speech disorder developmental [Unknown]
  - Mental disorder [Unknown]
  - Autism spectrum disorder [Unknown]
  - Intellectual disability [Unknown]
  - Learning disability [Unknown]
  - Dysmorphism [Unknown]
  - Low set ears [Unknown]
  - Personal relationship issue [Unknown]
  - Behaviour disorder [Unknown]
  - Rib deformity [Unknown]
  - Autism spectrum disorder [Unknown]
  - Executive dysfunction [Unknown]
  - Nervous system disorder [Unknown]
  - Personality disorder [Unknown]
  - Memory impairment [Unknown]
  - Hyperacusis [Unknown]
  - Congenital foot malformation [Unknown]
  - Learning disorder [Unknown]
  - Affect lability [Unknown]
  - Dentofacial anomaly [Unknown]
  - Disability [Unknown]
  - Nervous system disorder [Unknown]
  - Dysarthria [Unknown]
  - Hip deformity [Unknown]
  - Arthralgia [Unknown]
  - Supraventricular extrasystoles [Unknown]
  - Supraventricular tachycardia [Unknown]
  - Supraventricular extrasystoles [Unknown]
  - Tachycardia [Unknown]
  - Pseudarthrosis [Unknown]
  - Social problem [Unknown]
  - Educational problem [Unknown]
  - Fall [Unknown]
  - Soft tissue foreign body [Unknown]
  - Abdominal pain lower [Unknown]
  - Arthralgia [Unknown]
  - Decreased interest [Unknown]
  - Foetal exposure during pregnancy [Unknown]

NARRATIVE: CASE EVENT DATE: 20000822
